FAERS Safety Report 8768554 (Version 2)
Quarter: 2012Q4

REPORT INFORMATION
  Report Type: 
  Country: GB (occurrence: GB)
  Receive Date: 20120906
  Receipt Date: 20121017
  Transmission Date: 20130627
  Serious: Yes (Death)
  Sender: FDA-Public Use
  Company Number: GB-ROCHE-1114633

PATIENT
  Age: 87 Year
  Sex: Female

DRUGS (6)
  1. LUCENTIS [Suspect]
     Indication: PRODUCT USED FOR UNKNOWN INDICATION
     Route: 050
  2. LUCENTIS [Suspect]
     Route: 050
     Dates: start: 20100517
  3. METFORMIN [Concomitant]
  4. SIMVASTATIN [Concomitant]
  5. SOLPADOL [Concomitant]
  6. ALVERINE [Concomitant]

REACTIONS (1)
  - Cardiac failure congestive [Fatal]
